FAERS Safety Report 25639166 (Version 1)
Quarter: 2025Q3

REPORT INFORMATION
  Report Type: Spontaneous
  Country: US (occurrence: US)
  Receive Date: 20250804
  Receipt Date: 20250804
  Transmission Date: 20251020
  Serious: Yes (Hospitalization)
  Sender: KARYOPHARM THERAPEUTICS
  Company Number: US-KARYOPHARM-2025KPT100569

PATIENT

DRUGS (22)
  1. SELINEXOR [Suspect]
     Active Substance: SELINEXOR
     Indication: Malignant neoplasm of unknown primary site
     Route: 048
     Dates: start: 202507, end: 2025
  2. POMALYST [Concomitant]
     Active Substance: POMALIDOMIDE
  3. ACYCLOVIR [Concomitant]
     Active Substance: ACYCLOVIR
  4. AMITRIPTYLINE [Concomitant]
     Active Substance: AMITRIPTYLINE
  5. AMLODIPINE [Concomitant]
     Active Substance: AMLODIPINE BESYLATE
  6. ASPIRIN [Concomitant]
     Active Substance: ASPIRIN
  7. ATORVASTATIN [Concomitant]
     Active Substance: ATORVASTATIN
  8. CLOPIDOGREL [Concomitant]
     Active Substance: CLOPIDOGREL BISULFATE
  9. LASIX [Concomitant]
     Active Substance: FUROSEMIDE
  10. INSULIN LISPRO [Concomitant]
     Active Substance: INSULIN LISPRO
  11. JANUVIA [Concomitant]
     Active Substance: SITAGLIPTIN PHOSPHATE
  12. LIDOCAINE\PRILOCAINE [Concomitant]
     Active Substance: LIDOCAINE\PRILOCAINE
  13. LISINOPRIL [Concomitant]
     Active Substance: LISINOPRIL
  14. METHIMAZOLE [Concomitant]
     Active Substance: METHIMAZOLE
  15. METOPROLOL SUCCINATE [Concomitant]
     Active Substance: METOPROLOL SUCCINATE
  16. LINZESS [Concomitant]
     Active Substance: LINACLOTIDE
  17. ZYPREXA [Concomitant]
     Active Substance: OLANZAPINE
  18. ROSUVASTATIN [Concomitant]
     Active Substance: ROSUVASTATIN
  19. PROCHLORPERAZINE [Concomitant]
     Active Substance: PROCHLORPERAZINE
  20. ZOFRAN [Concomitant]
     Active Substance: ONDANSETRON HYDROCHLORIDE
  21. PANTOPRAZOLE [Concomitant]
     Active Substance: PANTOPRAZOLE
  22. PERCOCET [Concomitant]
     Active Substance: ACETAMINOPHEN\OXYCODONE HYDROCHLORIDE

REACTIONS (1)
  - Adverse event [Unknown]

NARRATIVE: CASE EVENT DATE: 20250101
